FAERS Safety Report 7076449-8 (Version None)
Quarter: 2010Q4

REPORT INFORMATION
  Report Type: 
  Country: None (occurrence: None)
  Receive Date: 20101101
  Receipt Date: 20101018
  Transmission Date: 20110411
  Serious: Yes (Disabling)
  Sender: FDA-Public Use
  Company Number: AR-ELI_LILLY_AND_COMPANY-AR201010004644

PATIENT
  Sex: Female

DRUGS (3)
  1. MIDAX [Suspect]
     Indication: DEPRESSION
     Dosage: 2.5 MG, EACH EVENING
     Route: 048
     Dates: start: 20100501
  2. CITALOPRAM HYDROBROMIDE [Concomitant]
     Indication: DEPRESSION
     Dosage: UNK, UNKNOWN
     Route: 065
  3. TAMOXIFEN CITRATE [Concomitant]
     Indication: DEPRESSION
     Dosage: UNK, UNKNOWN
     Route: 065

REACTIONS (6)
  - CONSTIPATION [None]
  - DRY MOUTH [None]
  - GASTROINTESTINAL INFLAMMATION [None]
  - LACK OF SATIETY [None]
  - OFF LABEL USE [None]
  - RASH [None]
